FAERS Safety Report 5604517-3 (Version None)
Quarter: 2008Q1

REPORT INFORMATION
  Report Type: 
  Country: None (occurrence: None)
  Receive Date: 20080123
  Receipt Date: 20080114
  Transmission Date: 20080703
  Serious: Yes (Death)
  Sender: FDA-Public Use
  Company Number: B0502972A

PATIENT
  Age: 24 Year
  Sex: Male

DRUGS (4)
  1. DIPHENHYDRAMINE HCL [Suspect]
     Dosage: ORAL
     Route: 048
  2. TRICYCLIC ANTIDEPRESSANT (TRICYCLIC ANTIDEPRESSANT) (FORMULATION UNKNO [Suspect]
     Dosage: ORAL
     Route: 048
  3. PAROXETINE HCL [Suspect]
     Dosage: ORAL
     Route: 048
  4. CEPHALEXIN [Suspect]
     Dosage: ORAL
     Route: 048

REACTIONS (2)
  - COMPLETED SUICIDE [None]
  - POISONING [None]
